FAERS Safety Report 7578697-7 (Version None)
Quarter: 2011Q2

REPORT INFORMATION
  Report Type: 
  Country: None (occurrence: None)
  Receive Date: 20110628
  Receipt Date: 20110619
  Transmission Date: 20111010
  Serious: Yes (Hospitalization)
  Sender: FDA-Public Use
  Company Number: US-CEPHALON-2011003173

PATIENT
  Sex: Female

DRUGS (1)
  1. NUVIGIL [Suspect]
     Route: 048
     Dates: start: 20110617

REACTIONS (5)
  - NAUSEA [None]
  - DRUG EFFECT INCREASED [None]
  - HEADACHE [None]
  - HYPONATRAEMIA [None]
  - VOMITING [None]
